FAERS Safety Report 6764023-X (Version None)
Quarter: 2010Q2

REPORT INFORMATION
  Report Type: 
  Country: None (occurrence: None)
  Receive Date: 20100610
  Receipt Date: 20090825
  Transmission Date: 20101027
  Serious: No
  Sender: FDA-Public Use
  Company Number: US-ASTRAZENECA-2009SE10042

PATIENT
  Age: 57 Year
  Sex: Female
  Weight: 81.6 kg

DRUGS (7)
  1. FASLODEX [Suspect]
     Indication: BREAST CANCER
     Route: 030
     Dates: start: 20090821
  2. CRESTOR [Concomitant]
  3. AMBIEN [Concomitant]
  4. ACIPHEX [Concomitant]
  5. VITAMIN D [Concomitant]
  6. AZINEX [Concomitant]
  7. VOLTAREN [Concomitant]

REACTIONS (5)
  - INJECTION SITE ANAESTHESIA [None]
  - INJECTION SITE DISCOLOURATION [None]
  - INJECTION SITE HAEMATOMA [None]
  - INJECTION SITE PAIN [None]
  - INJECTION SITE PRURITUS [None]
